FAERS Safety Report 23569821 (Version 2)
Quarter: 2024Q1

REPORT INFORMATION
  Report Type: Spontaneous
  Country: JP (occurrence: None)
  Receive Date: 20240227
  Receipt Date: 20240312
  Transmission Date: 20240410
  Serious: Yes (Other)
  Sender: FDA-Public Use
  Company Number: 2024A044558

PATIENT
  Age: 47 Year
  Sex: Female

DRUGS (5)
  1. BREZTRI [Suspect]
     Active Substance: BUDESONIDE\FORMOTEROL\GLYCOPYRROLATE
     Indication: Bronchitis chronic
     Dosage: DOSE UNKNOWN
     Route: 055
     Dates: start: 20240214, end: 20240215
  2. ACETAMINOPHEN [Concomitant]
     Active Substance: ACETAMINOPHEN
     Dosage: AS REQUIRED
     Route: 048
     Dates: start: 20240129
  3. BEPOTASTINE BESYLATE [Concomitant]
     Active Substance: BEPOTASTINE BESYLATE
     Route: 048
     Dates: start: 20240129
  4. PRANLUKAST [Concomitant]
     Active Substance: PRANLUKAST
     Route: 048
     Dates: start: 20240129
  5. EPINASTINE [Concomitant]
     Active Substance: EPINASTINE
     Dosage: DOSE UNKNOWN
     Route: 047
     Dates: start: 20240129

REACTIONS (1)
  - Face oedema [Recovering/Resolving]

NARRATIVE: CASE EVENT DATE: 20240211
